FAERS Safety Report 21949532 (Version 1)
Quarter: 2023Q1

REPORT INFORMATION
  Report Type: Spontaneous
  Country: AU (occurrence: AU)
  Receive Date: 20230203
  Receipt Date: 20230203
  Transmission Date: 20230418
  Serious: Yes (Other)
  Sender: FDA-Public Use
  Company Number: AU-MLMSERVICE-20230119-4050075-1

PATIENT
  Age: 36 Year
  Sex: Male

DRUGS (4)
  1. MOXIFLOXACIN [Suspect]
     Active Substance: MOXIFLOXACIN
     Indication: Latent tuberculosis
  2. RIFAMPIN [Suspect]
     Active Substance: RIFAMPIN
     Indication: Latent tuberculosis
  3. PYRIDOXINE [Suspect]
     Active Substance: PYRIDOXINE
     Indication: Latent tuberculosis
  4. ISONIAZID [Suspect]
     Active Substance: ISONIAZID
     Indication: Latent tuberculosis

REACTIONS (4)
  - Paradoxical drug reaction [Recovered/Resolved]
  - Condition aggravated [Recovered/Resolved]
  - Choroiditis [Recovered/Resolved]
  - Off label use [None]
